FAERS Safety Report 4601837-6 (Version None)
Quarter: 2005Q1

REPORT INFORMATION
  Report Type: 
  Country: None (occurrence: None)
  Receive Date: 20050131
  Receipt Date: 20041018
  Transmission Date: 20050727
  Serious: No
  Sender: FDA-Public Use
  Company Number: 200417948US

PATIENT
  Age: 30 Year
  Sex: Female

DRUGS (1)
  1. KETEK [Suspect]
     Indication: PHARYNGITIS
     Dosage: 800 MG QD PO
     Route: 048
     Dates: start: 20041015

REACTIONS (5)
  - DIPLOPIA [None]
  - DIZZINESS [None]
  - HEADACHE [None]
  - NAUSEA [None]
  - VISION BLURRED [None]
